FAERS Safety Report 16742169 (Version 1)
Quarter: 2019Q3

REPORT INFORMATION
  Report Type: Not Available
  Country: US (occurrence: US)
  Receive Date: 20190826
  Receipt Date: 20190826
  Transmission Date: 20191005
  Serious: No
  Sender: FDA-Public Use
  Company Number: US-NEUROCRINE BIOSCIENCES INC.-2019NBI02334

PATIENT
  Sex: Female

DRUGS (15)
  1. INGREZZA [Suspect]
     Active Substance: VALBENAZINE
     Indication: TARDIVE DYSKINESIA
     Route: 048
     Dates: start: 20190703, end: 20190710
  2. CALCIUM [Concomitant]
     Active Substance: CALCIUM
  3. INGREZZA [Suspect]
     Active Substance: VALBENAZINE
     Route: 048
     Dates: start: 20190711
  4. VITAMIN D3 [Concomitant]
     Active Substance: CHOLECALCIFEROL
  5. VITAMIN D2 [Concomitant]
     Active Substance: ERGOCALCIFEROL
  6. DULOXETINE. [Concomitant]
     Active Substance: DULOXETINE
  7. LAMOTRIGINE. [Concomitant]
     Active Substance: LAMOTRIGINE
  8. ATORVASTATIN [Concomitant]
     Active Substance: ATORVASTATIN
  9. AMITRIPTYLINE [Concomitant]
     Active Substance: AMITRIPTYLINE
  10. IBUPROFEN. [Concomitant]
     Active Substance: IBUPROFEN
  11. SALINE [Concomitant]
     Active Substance: SODIUM CHLORIDE
     Route: 045
  12. BIOTIN [Concomitant]
     Active Substance: BIOTIN
  13. DESLORATADINE. [Concomitant]
     Active Substance: DESLORATADINE
  14. POTASSIUM [Concomitant]
     Active Substance: POTASSIUM
  15. BREO ELLIPTA [Concomitant]
     Active Substance: FLUTICASONE FUROATE\VILANTEROL TRIFENATATE

REACTIONS (1)
  - Migraine [Unknown]

NARRATIVE: CASE EVENT DATE: 2019
